FAERS Safety Report 16595391 (Version 1)
Quarter: 2019Q3

REPORT INFORMATION
  Report Type: Spontaneous
  Country: DE (occurrence: DE)
  Receive Date: 20190719
  Receipt Date: 20190719
  Transmission Date: 20191004
  Serious: No
  Sender: FDA-Public Use
  Company Number: DE-HORMOSAN PHARMA GMBH-2019-03179

PATIENT
  Sex: Male

DRUGS (1)
  1. TADALAFIL-HORMOSAN 5 MG FILMTABLETTEN [Suspect]
     Active Substance: TADALAFIL
     Dosage: 5 MILLIGRAM, QD
     Route: 048
     Dates: start: 20190514, end: 20190514

REACTIONS (3)
  - Paraesthesia [Unknown]
  - Hypoaesthesia oral [Unknown]
  - Dysgeusia [Unknown]

NARRATIVE: CASE EVENT DATE: 20190514
